FAERS Safety Report 4988881-4 (Version None)
Quarter: 2006Q2

REPORT INFORMATION
  Report Type: 
  Country: None (occurrence: None)
  Receive Date: 20060425
  Receipt Date: 20030929
  Transmission Date: 20061013
  Serious: Yes (Hospitalization)
  Sender: FDA-Public Use
  Company Number: 8003857

PATIENT
  Age: 66 Year
  Sex: Male

DRUGS (5)
  1. KEPPRA [Suspect]
     Indication: PAIN MANAGEMENT
     Dosage: 250 MG 2/D; PO
     Route: 048
     Dates: start: 20030101, end: 20030101
  2. KEPPRA [Suspect]
     Indication: PAIN MANAGEMENT
     Dosage: 500 MG 2/D; PO
     Route: 048
     Dates: start: 20030101, end: 20030101
  3. KEPPRA [Suspect]
     Indication: PAIN MANAGEMENT
     Dosage: 250 MG 2/D; PO
     Route: 048
     Dates: start: 20030101
  4. GLUCOPHAGE [Concomitant]
  5. DURAGESIC-100 [Concomitant]

REACTIONS (6)
  - DIARRHOEA [None]
  - ECONOMIC PROBLEM [None]
  - HALLUCINATION [None]
  - HYPONATRAEMIA [None]
  - OVERDOSE [None]
  - TREATMENT NONCOMPLIANCE [None]
